FAERS Safety Report 9061714 (Version 1)
Quarter: 2013Q1

REPORT INFORMATION
  Report Type: Report from Study
  Country: US (occurrence: US)
  Receive Date: 20130204
  Receipt Date: 20130204
  Transmission Date: 20140127
  Serious: Yes (Hospitalization, Other)
  Sender: FDA-Public Use
  Company Number: US-BRISTOL-MYERS SQUIBB COMPANY-17324336

PATIENT
  Age: 67 Year
  Sex: Female
  Weight: 58.5 kg

DRUGS (1)
  1. IPILIMUMAB [Suspect]
     Indication: MALIGNANT MELANOMA
     Dosage: LAST DOSE ON 20DEC12, NO OF COURSES: 3.TOTAL DOSE : 178MG.
     Route: 042
     Dates: start: 20121105

REACTIONS (2)
  - Diarrhoea [Recovering/Resolving]
  - Dehydration [Recovering/Resolving]
